FAERS Safety Report 19937907 (Version 1)
Quarter: 2021Q4

REPORT INFORMATION
  Report Type: Spontaneous
  Country: US (occurrence: US)
  Receive Date: 20211011
  Receipt Date: 20211011
  Transmission Date: 20220303
  Serious: No
  Sender: FDA-Public Use
  Company Number: US-ROCHE-2835017

PATIENT
  Sex: Female

DRUGS (1)
  1. EVRYSDI [Suspect]
     Active Substance: RISDIPLAM
     Indication: Product used for unknown indication
     Route: 065

REACTIONS (6)
  - Abdominal distension [Unknown]
  - Gastric dilatation [Unknown]
  - Abdominal discomfort [Unknown]
  - Mobility decreased [Unknown]
  - Muscular weakness [Unknown]
  - Insomnia [Unknown]
